FAERS Safety Report 20680285 (Version 4)
Quarter: 2025Q1

REPORT INFORMATION
  Report Type: Report from Study
  Country: US (occurrence: US)
  Receive Date: 20220406
  Receipt Date: 20250314
  Transmission Date: 20250408
  Serious: Yes (Hospitalization, Other)
  Sender: TAKEDA
  Company Number: US-TAKEDA-2022TUS020746

PATIENT
  Age: 26 Year
  Sex: Male
  Weight: 100 kg

DRUGS (22)
  1. PARATHYROID HORMONE [Suspect]
     Active Substance: PARATHYROID HORMONE
     Indication: Hypoparathyroidism
     Dosage: 50 MICROGRAM, QD
     Dates: start: 20170712, end: 20180617
  2. PARATHYROID HORMONE [Suspect]
     Active Substance: PARATHYROID HORMONE
     Dosage: 75 MICROGRAM, QD
     Dates: start: 20180617, end: 20190617
  3. PARATHYROID HORMONE [Suspect]
     Active Substance: PARATHYROID HORMONE
     Dosage: 50 MICROGRAM, QD
     Dates: start: 20190617, end: 20190906
  4. PARATHYROID HORMONE [Suspect]
     Active Substance: PARATHYROID HORMONE
     Dosage: 50 MICROGRAM, QD
     Dates: start: 20200728, end: 20200821
  5. PARATHYROID HORMONE [Suspect]
     Active Substance: PARATHYROID HORMONE
     Dosage: 25 MICROGRAM, QD
     Dates: start: 20200822, end: 20200827
  6. PARATHYROID HORMONE [Suspect]
     Active Substance: PARATHYROID HORMONE
     Dosage: 50 MICROGRAM, QD
     Dates: start: 20200828, end: 20201012
  7. PARATHYROID HORMONE [Suspect]
     Active Substance: PARATHYROID HORMONE
     Dosage: 25 MICROGRAM, QD
     Dates: start: 20201012, end: 20210608
  8. PARATHYROID HORMONE [Suspect]
     Active Substance: PARATHYROID HORMONE
  9. PREDNISONE [Concomitant]
     Active Substance: PREDNISONE
     Indication: Polyglandular autoimmune syndrome type II
  10. LEVOTHYROXINE [Concomitant]
     Active Substance: LEVOTHYROXINE
     Indication: Hypothyroidism
  11. FLORINEF ACETATE [Concomitant]
     Active Substance: FLUDROCORTISONE ACETATE
     Indication: Addison^s disease
  12. SODIUM BICARBONATE [Concomitant]
     Active Substance: SODIUM BICARBONATE
  13. HYDROCORTISONE [Concomitant]
     Active Substance: HYDROCORTISONE
     Indication: Polyglandular autoimmune syndrome type II
     Dates: start: 20200728, end: 20200818
  14. HYDROCORTISONE [Concomitant]
     Active Substance: HYDROCORTISONE
  15. SEVELAMER CARBONATE [Concomitant]
     Active Substance: SEVELAMER CARBONATE
  16. FLUOXETINE [Concomitant]
     Active Substance: FLUOXETINE HYDROCHLORIDE
  17. RETACRIT [Concomitant]
     Active Substance: EPOETIN ALFA-EPBX
     Indication: Anaemia
     Dates: start: 20200713, end: 20200825
  18. VANCOMYCIN [Concomitant]
     Active Substance: VANCOMYCIN
     Indication: Clostridium difficile immunisation
     Dates: start: 20200708, end: 20200728
  19. AMLODIPINE [Concomitant]
     Active Substance: AMLODIPINE BESYLATE
     Indication: Hypertension
     Dates: start: 20200728, end: 20200811
  20. FLUDROCORTISONE [Concomitant]
     Active Substance: FLUDROCORTISONE
     Indication: Polyglandular autoimmune syndrome type II
     Dates: start: 20200728, end: 20200824
  21. DDAVP [Concomitant]
     Active Substance: DESMOPRESSIN ACETATE
     Indication: Polyuria
     Dates: start: 20200728, end: 20200827
  22. VITAMIN D [Concomitant]
     Active Substance: VITAMIN D NOS
     Dosage: 5000.0 INTERNATIONAL UNIT, QD
     Dates: start: 20190613

REACTIONS (2)
  - Acute kidney injury [Recovered/Resolved]
  - Chronic kidney disease [Recovered/Resolved]

NARRATIVE: CASE EVENT DATE: 20220323
